FAERS Safety Report 4765829-9 (Version None)
Quarter: 2005Q3

REPORT INFORMATION
  Report Type: 
  Country: None (occurrence: None)
  Receive Date: 20050906
  Receipt Date: 20050823
  Transmission Date: 20060218
  Serious: Yes (Disabling, Other)
  Sender: FDA-Public Use
  Company Number: 2005119629

PATIENT
  Age: 76 Year
  Sex: Female
  Weight: 73 kg

DRUGS (4)
  1. PREDNISONE [Suspect]
     Indication: ILL-DEFINED DISORDER
     Dosage: (40 MG), ORAL
     Route: 048
     Dates: start: 20050212
  2. LEVOFLOXACIN [Suspect]
     Indication: LOWER RESPIRATORY TRACT INFECTION
     Dosage: (500 MG), ORAL
     Route: 048
     Dates: start: 20050211, end: 20050218
  3. THYROXINE (LEVOTHYROXINE) [Concomitant]
  4. ALENDRONATE SODIUM [Concomitant]

REACTIONS (1)
  - TENDON RUPTURE [None]
